FAERS Safety Report 11129084 (Version 1)
Quarter: 2015Q2

REPORT INFORMATION
  Report Type: Spontaneous
  Country: US (occurrence: None)
  Receive Date: 20150520
  Receipt Date: 20150520
  Transmission Date: 20150821
  Serious: Yes (Other)
  Sender: FDA-Public Use
  Company Number: None

PATIENT
  Age: 64 Month
  Sex: Female
  Weight: 70.31 kg

DRUGS (14)
  1. DITIAZEM [Concomitant]
  2. MOBIC [Concomitant]
     Active Substance: MELOXICAM
  3. ALPRAZOLAM. [Concomitant]
     Active Substance: ALPRAZOLAM
  4. CALCIUM [Concomitant]
     Active Substance: CALCIUM
  5. PROBIOTICS [Concomitant]
     Active Substance: PROBIOTICS NOS
  6. VITAMIN C [Concomitant]
     Active Substance: ASCORBIC ACID
  7. LISINOPRIL-HYDROCHOROTHIAZIDE [Concomitant]
  8. PRESCRIPTION VITAMIN D [Concomitant]
  9. MAGNESIUM [Concomitant]
     Active Substance: MAGNESIUM
  10. FLONASE [Concomitant]
     Active Substance: FLUTICASONE PROPIONATE
  11. RECLAST [Suspect]
     Active Substance: ZOLEDRONIC ACID
     Indication: OSTEOPOROSIS
     Dosage: ONE A YEAR
     Dates: start: 20150127, end: 20150127
  12. ALBUTEROL. [Concomitant]
     Active Substance: ALBUTEROL
  13. MULTIVITAMIN [Concomitant]
     Active Substance: VITAMINS
  14. PROTEIN WITH FIBER [Concomitant]

REACTIONS (13)
  - Back pain [None]
  - Pain in extremity [None]
  - Pain [None]
  - Decreased appetite [None]
  - No therapeutic response [None]
  - Arthropathy [None]
  - Paralysis [None]
  - Arthralgia [None]
  - Nausea [None]
  - Frustration [None]
  - Vision blurred [None]
  - Insomnia [None]
  - Restlessness [None]

NARRATIVE: CASE EVENT DATE: 20150127
